FAERS Safety Report 4959611-7 (Version None)
Quarter: 2006Q1

REPORT INFORMATION
  Report Type: 
  Country: None (occurrence: None)
  Receive Date: 20060331
  Receipt Date: 20060324
  Transmission Date: 20060701
  Serious: Yes (Other)
  Sender: FDA-Public Use
  Company Number: BR-ROCHE-441947

PATIENT
  Age: 25 Year
  Sex: Male
  Weight: 73 kg

DRUGS (3)
  1. RIVOTRIL [Suspect]
     Indication: DEPRESSION
     Route: 048
     Dates: start: 20050315, end: 20060323
  2. RIVOTRIL [Suspect]
     Route: 048
     Dates: start: 20060324, end: 20060324
  3. DAFORIN [Concomitant]
     Dosage: DOSE UNSPECIFIED.
     Dates: end: 20060324

REACTIONS (2)
  - DIZZINESS [None]
  - SUICIDE ATTEMPT [None]
